FAERS Safety Report 16671415 (Version 1)
Quarter: 2019Q3

REPORT INFORMATION
  Report Type: Spontaneous
  Country: US (occurrence: US)
  Receive Date: 20190806
  Receipt Date: 20190806
  Transmission Date: 20191004
  Serious: No
  Sender: FDA-Public Use
  Company Number: US-P+ L DEVELOPMENTS OF NEWYORK CORPORATION-2072788

PATIENT
  Sex: Male

DRUGS (1)
  1. NICOTINE. [Suspect]
     Active Substance: NICOTINE
     Indication: STRESS
     Route: 048

REACTIONS (5)
  - Overdose [Unknown]
  - Withdrawal syndrome [Unknown]
  - Intentional product misuse [Unknown]
  - Feeling abnormal [Unknown]
  - Depression [Unknown]
